FAERS Safety Report 25990482 (Version 2)
Quarter: 2025Q4

REPORT INFORMATION
  Report Type: Report from Study
  Country: IN (occurrence: IN)
  Receive Date: 20251103
  Receipt Date: 20251230
  Transmission Date: 20260118
  Serious: Yes (Death)
  Sender: ALEXION PHARMACEUTICALS
  Company Number: IN-AstraZeneca-CH-00984599A

PATIENT
  Sex: Female
  Weight: 105 kg

DRUGS (1)
  1. DURVALUMAB [Suspect]
     Active Substance: DURVALUMAB
     Indication: Metastases to biliary tract
     Dosage: 1500 MILLIGRAM, Q3W

REACTIONS (1)
  - Cardiac failure [Fatal]
